FAERS Safety Report 9699143 (Version 1)
Quarter: 2013Q4

REPORT INFORMATION
  Report Type: Spontaneous
  Country: US (occurrence: US)
  Receive Date: 20131120
  Receipt Date: 20131120
  Transmission Date: 20140711
  Serious: No
  Sender: FDA-Public Use
  Company Number: US-GILEAD-2008-0014770

PATIENT
  Age: 77 Year
  Sex: Female
  Weight: 62.6 kg

DRUGS (10)
  1. LETAIRIS [Suspect]
     Indication: PULMONARY ARTERIAL HYPERTENSION
     Route: 048
     Dates: end: 20071101
  2. REVATIO [Concomitant]
     Indication: PULMONARY ARTERIAL HYPERTENSION
     Route: 048
  3. PRILOSEC [Concomitant]
     Indication: GASTROOESOPHAGEAL REFLUX DISEASE
     Route: 048
  4. DIGOXIN [Concomitant]
     Indication: ESSENTIAL HYPERTENSION
     Route: 048
  5. LASIX [Concomitant]
     Indication: PULMONARY ARTERIAL HYPERTENSION
     Route: 048
  6. SPIRONOLACTONE [Concomitant]
     Indication: PULMONARY ARTERIAL HYPERTENSION
     Route: 048
  7. METOPROLOL [Concomitant]
     Indication: ESSENTIAL HYPERTENSION
     Route: 048
  8. PREDNISONE [Concomitant]
     Indication: ESSENTIAL HYPERTENSION
     Dosage: EVERY OTHER DAY
     Route: 048
  9. PROZAC [Concomitant]
     Indication: DEPRESSION
     Route: 048
  10. CALCIUM [Concomitant]
     Indication: MINERAL SUPPLEMENTATION
     Route: 048

REACTIONS (1)
  - Headache [Not Recovered/Not Resolved]
